FAERS Safety Report 4990782-2 (Version None)
Quarter: 2006Q2

REPORT INFORMATION
  Report Type: 
  Country: None (occurrence: None)
  Receive Date: 20060503
  Receipt Date: 20060427
  Transmission Date: 20061013
  Serious: Yes (Disabling)
  Sender: FDA-Public Use
  Company Number: CH-BOEHRINGER INGELHEIM PHARMACEUTICALS, INC.-2006-DE-02176SI

PATIENT
  Age: 73 Year
  Sex: Male
  Weight: 85 kg

DRUGS (13)
  1. PRADIF [Suspect]
     Indication: BENIGN PROSTATIC HYPERPLASIA
     Route: 048
     Dates: start: 20050510
  2. ALLOPURINOL [Concomitant]
     Route: 048
  3. PADMA [Concomitant]
     Dosage: STRENGTH: 4/20/10 MG
     Route: 048
  4. NEOSPORIN [Concomitant]
     Indication: SURGERY
     Route: 031
     Dates: start: 20050608, end: 20050608
  5. ACULAR [Concomitant]
     Indication: SURGERY
     Route: 031
     Dates: start: 20050608, end: 20050608
  6. CYCLOGYL [Concomitant]
     Indication: SURGERY
     Route: 031
     Dates: start: 20050608, end: 20050608
  7. PHENYLEPHRIN [Concomitant]
     Indication: SURGERY
     Route: 031
     Dates: start: 20050608, end: 20050608
  8. NOVESIN [Concomitant]
     Indication: SURGERY
     Route: 031
     Dates: start: 20050608, end: 20050608
  9. BETADINE [Concomitant]
     Indication: SURGERY
     Route: 062
     Dates: start: 20050608, end: 20050608
  10. BSS PLUS [Concomitant]
     Indication: SURGERY
     Route: 031
     Dates: start: 20050608, end: 20050608
  11. PETHIDINE HYDROCHLORIDE [Concomitant]
     Indication: SURGERY
     Route: 042
     Dates: start: 20050608, end: 20050608
  12. DISOPRIVAN [Concomitant]
     Indication: SURGERY
     Route: 042
     Dates: start: 20050608, end: 20050608
  13. MEPIVACAINE SINTETICA [Concomitant]
     Indication: SURGERY
     Route: 031
     Dates: start: 20050608, end: 20050608

REACTIONS (3)
  - EYE DISORDER [None]
  - MIOSIS [None]
  - MYDRIASIS [None]
